FAERS Safety Report 6930159-3 (Version None)
Quarter: 2010Q3

REPORT INFORMATION
  Report Type: 
  Country: None (occurrence: None)
  Receive Date: 20100818
  Receipt Date: 20100809
  Transmission Date: 20110219
  Serious: No
  Sender: FDA-Public Use
  Company Number: US-PFIZER INC-2010100401

PATIENT
  Sex: Female

DRUGS (2)
  1. LIPITOR [Suspect]
     Indication: BLOOD CHOLESTEROL INCREASED
     Dosage: UNK
     Dates: start: 20090101, end: 20090101
  2. SIMVASTATIN [Suspect]
     Dosage: UNK

REACTIONS (3)
  - DYSPEPSIA [None]
  - FLATULENCE [None]
  - GASTROINTESTINAL DISORDER [None]
